FAERS Safety Report 8808898 (Version 1)
Quarter: 2012Q4

REPORT INFORMATION
  Report Type: Spontaneous
  Country: US (occurrence: None)
  Receive Date: 20120920
  Receipt Date: 20120920
  Transmission Date: 20130627
  Serious: No
  Sender: FDA-Public Use
  Company Number: None

PATIENT
  Age: 24 Year
  Sex: Female
  Weight: 88 kg

DRUGS (1)
  1. ZYPREXA [Suspect]
     Indication: BIPOLAR DISORDER
     Dosage: zyprexa zydis 20 mg 1 tablet @ bed time
     Dates: start: 20110512, end: 20110924

REACTIONS (3)
  - Aspartate aminotransferase increased [None]
  - Alanine aminotransferase increased [None]
  - Weight increased [None]
